FAERS Safety Report 25438042 (Version 1)
Quarter: 2025Q2

REPORT INFORMATION
  Report Type: Other
  Country: GB (occurrence: GB)
  Receive Date: 20250616
  Receipt Date: 20250616
  Transmission Date: 20250716
  Serious: Yes (Life-Threatening, Hospitalization, Disabling, Other)
  Sender: LUPIN
  Company Number: None

PATIENT
  Age: 63 Year
  Weight: 80 kg

DRUGS (1)
  1. SERTRALINE [Suspect]
     Active Substance: SERTRALINE HYDROCHLORIDE
     Indication: Depressed mood
     Dosage: 100 MILLIGRAM, QD (ONCE IN THE MORNING)
     Route: 065

REACTIONS (1)
  - Abnormal dreams [Not Recovered/Not Resolved]
